FAERS Safety Report 20617786 (Version 3)
Quarter: 2023Q1

REPORT INFORMATION
  Report Type: Spontaneous
  Country: US (occurrence: US)
  Receive Date: 20220321
  Receipt Date: 20230201
  Transmission Date: 20230418
  Serious: No
  Sender: FDA-Public Use
  Company Number: US-PFIZER INC-202200327415

PATIENT
  Age: 75 Year
  Sex: Female

DRUGS (3)
  1. IBRANCE [Suspect]
     Active Substance: PALBOCICLIB
     Dosage: 125 MG
     Dates: start: 20220207, end: 20220222
  2. IBRANCE [Suspect]
     Active Substance: PALBOCICLIB
     Dosage: 100 MG
     Dates: start: 20220306
  3. IBRANCE [Suspect]
     Active Substance: PALBOCICLIB
     Dosage: 75 MG

REACTIONS (8)
  - Product dose omission issue [Unknown]
  - White blood cell count decreased [Unknown]
  - Cheilitis [Unknown]
  - Headache [Unknown]
  - Lip blister [Recovered/Resolved]
  - Constipation [Not Recovered/Not Resolved]
  - Lip dry [Unknown]
  - Toothache [Unknown]

NARRATIVE: CASE EVENT DATE: 20220101
